FAERS Safety Report 7824759-6 (Version None)
Quarter: 2011Q4

REPORT INFORMATION
  Report Type: 
  Country: None (occurrence: None)
  Receive Date: 20111019
  Receipt Date: 20111014
  Transmission Date: 20120403
  Serious: Yes (Death, Other)
  Sender: FDA-Public Use
  Company Number: PHHY2011NL82883

PATIENT
  Sex: Male
  Weight: 65 kg

DRUGS (11)
  1. ZOMETA [Suspect]
     Indication: PROSTATE CANCER METASTATIC
     Dosage: 4 MG/5ML
     Route: 042
     Dates: start: 20101215
  2. CASODEX [Concomitant]
     Dosage: UNK
  3. ZOMETA [Suspect]
     Dosage: 4 MG/5 ML
     Route: 042
     Dates: end: 20110830
  4. LEUPROLIDE ACETATE [Concomitant]
     Dosage: UNK
  5. BISOPROLOL [Concomitant]
     Dosage: UNK
  6. SIMVASTATIN [Concomitant]
     Dosage: UNK
  7. CHEMOTHERAPEUTICS [Suspect]
     Dosage: UNK
  8. ANTIARRHYTHMICS [Concomitant]
     Dosage: UNK
  9. ASCAL [Concomitant]
     Dosage: UNK
  10. FUROSEMIDE [Concomitant]
     Dosage: UNK
  11. TAXOTERE [Concomitant]
     Dosage: UNK
     Dates: start: 20110101, end: 20110301

REACTIONS (3)
  - NEOPLASM MALIGNANT [None]
  - GENERAL PHYSICAL HEALTH DETERIORATION [None]
  - NEOPLASM PROGRESSION [None]
